FAERS Safety Report 12816624 (Version 1)
Quarter: 2016Q4

REPORT INFORMATION
  Report Type: Spontaneous
  Country: US (occurrence: US)
  Receive Date: 20161006
  Receipt Date: 20161006
  Transmission Date: 20170207
  Serious: No
  Sender: FDA-Public Use
  Company Number: US-NOVEN PHARMACEUTICALS, INC.-US2016000875

PATIENT

DRUGS (2)
  1. COMBIPATCH [Suspect]
     Active Substance: ESTRADIOL\NORETHINDRONE ACETATE
     Indication: HOT FLUSH
     Dosage: 0.05/0.25 MG
     Route: 062
     Dates: start: 201510
  2. COMBIPATCH [Suspect]
     Active Substance: ESTRADIOL\NORETHINDRONE ACETATE
     Indication: NIGHT SWEATS

REACTIONS (5)
  - Incorrect product storage [Unknown]
  - Wrong technique in product usage process [Unknown]
  - No adverse event [Unknown]
  - Product adhesion issue [Unknown]
  - Drug administration error [Unknown]

NARRATIVE: CASE EVENT DATE: 201510
